FAERS Safety Report 6898460-X (Version None)
Quarter: 2010Q3

REPORT INFORMATION
  Report Type: 
  Country: None (occurrence: None)
  Receive Date: 20100802
  Receipt Date: 20071017
  Transmission Date: 20110219
  Serious: No
  Sender: FDA-Public Use
  Company Number: US-PFIZER INC-2007088108

PATIENT
  Sex: Female

DRUGS (4)
  1. LYRICA [Suspect]
  2. VICODIN [Concomitant]
  3. ELAVIL [Concomitant]
  4. ALL OTHER THERAPEUTIC PRODUCTS [Concomitant]

REACTIONS (1)
  - CONSTIPATION [None]
